FAERS Safety Report 5803138-7 (Version None)
Quarter: 2008Q3

REPORT INFORMATION
  Report Type: 
  Country: None (occurrence: None)
  Receive Date: 20080708
  Receipt Date: 20080627
  Transmission Date: 20090109
  Serious: Yes (Disabling)
  Sender: FDA-Public Use
  Company Number: US-MERCK-0712USA08167

PATIENT
  Age: 72 Year
  Sex: Female

DRUGS (1)
  1. FOSAMAX [Suspect]
     Route: 048
     Dates: start: 20030623, end: 20060101

REACTIONS (5)
  - CONTUSION [None]
  - FALL [None]
  - OSTEOARTHRITIS [None]
  - PAIN IN JAW [None]
  - RESORPTION BONE INCREASED [None]
